FAERS Safety Report 20664611 (Version 2)
Quarter: 2022Q2

REPORT INFORMATION
  Report Type: Spontaneous
  Country: US (occurrence: US)
  Receive Date: 20220401
  Receipt Date: 20220513
  Transmission Date: 20220721
  Serious: Yes (Other)
  Sender: FDA-Public Use
  Company Number: US-PFIZER INC-202200484068

PATIENT
  Age: 20 Year
  Sex: Female

DRUGS (4)
  1. GEMTUZUMAB OZOGAMICIN [Suspect]
     Active Substance: GEMTUZUMAB OZOGAMICIN
     Dosage: UNK
  2. ACETAMINOPHEN [Concomitant]
     Active Substance: ACETAMINOPHEN
     Dosage: UNK
  3. DIPHENHYDRAMINE [Concomitant]
     Active Substance: DIPHENHYDRAMINE
     Dosage: UNK
  4. ALBENDAZOLE [Concomitant]
     Active Substance: ALBENDAZOLE

REACTIONS (6)
  - Platelet count decreased [Recovered/Resolved]
  - Mouth haemorrhage [Recovered/Resolved]
  - Blood bilirubin increased [Unknown]
  - Aspartate aminotransferase increased [Unknown]
  - Hepatic function abnormal [Unknown]
  - Ocular icterus [Unknown]
